FAERS Safety Report 16032776 (Version 1)
Quarter: 2019Q1

REPORT INFORMATION
  Report Type: Spontaneous
  Country: US (occurrence: US)
  Receive Date: 20190305
  Receipt Date: 20190305
  Transmission Date: 20190418
  Serious: No
  Sender: FDA-Public Use
  Company Number: US-IMPAX LABORATORIES, LLC-2018-IPXL-02098

PATIENT
  Age: 66 Year
  Sex: Male

DRUGS (3)
  1. RYTARY [Suspect]
     Active Substance: CARBIDOPA\LEVODOPA
     Dosage: 36.25/145MG, 2 CAPS, 5/DAY, AT NIGHT (WITH 48.75/195MG)
     Route: 065
  2. RYTARY [Suspect]
     Active Substance: CARBIDOPA\LEVODOPA
     Dosage: 48.75/195MG 1 CAP, 5/DAY (6AM, 9AM, 12AM, 3PM, 6PM), AT NIGHT (WITH 36.25/145MG)
     Route: 065
  3. RYTARY [Suspect]
     Active Substance: CARBIDOPA\LEVODOPA
     Indication: PARKINSON^S DISEASE
     Dosage: 48.75/195MG, FOUR TIMES DAILY
     Route: 065

REACTIONS (6)
  - Tremor [Recovering/Resolving]
  - Therapeutic response decreased [Unknown]
  - Drug effect variable [Unknown]
  - Dystonia [Recovering/Resolving]
  - Dyskinesia [Not Recovered/Not Resolved]
  - Prescribed overdose [Unknown]
